FAERS Safety Report 4645848-3 (Version None)
Quarter: 2005Q2

REPORT INFORMATION
  Report Type: 
  Country: None (occurrence: None)
  Receive Date: 20050425
  Receipt Date: 20050412
  Transmission Date: 20051028
  Serious: Yes (Other)
  Sender: FDA-Public Use
  Company Number: S05-USA-01991-01

PATIENT
  Age: 28 Year
  Sex: Female

DRUGS (4)
  1. LEXAPRO [Suspect]
     Indication: DEPRESSION
     Dosage: 10 MG QD PO
     Route: 048
     Dates: start: 20041001, end: 20050408
  2. LEXAPRO [Suspect]
     Indication: DEPRESSION
     Dosage: 5 MG QD PO
     Route: 048
     Dates: start: 20050414
  3. ATIVAN [Concomitant]
  4. ORTHO EVRA [Concomitant]

REACTIONS (4)
  - APNOEA [None]
  - CYANOSIS [None]
  - GRAND MAL CONVULSION [None]
  - SIMPLE PARTIAL SEIZURES [None]
